FAERS Safety Report 23447177 (Version 1)
Quarter: 2024Q1

REPORT INFORMATION
  Report Type: Report from Study
  Country: US (occurrence: None)
  Receive Date: 20240126
  Receipt Date: 20240126
  Transmission Date: 20240409
  Serious: Yes (Death)
  Sender: FDA-Public Use
  Company Number: 2024A018887

PATIENT
  Age: 23785 Day
  Sex: Male
  Weight: 111.1 kg

DRUGS (10)
  1. LYNPARZA [Suspect]
     Active Substance: OLAPARIB
     Indication: Prostate cancer
     Route: 048
     Dates: start: 20230920
  2. LUPRON [Concomitant]
     Active Substance: LEUPROLIDE ACETATE
  3. TAMSULOSIN HYDROCHLORIDE [Concomitant]
     Active Substance: TAMSULOSIN HYDROCHLORIDE
  4. GABAPENTIN [Concomitant]
     Active Substance: GABAPENTIN
  5. ACETAMINOPHEN\HYDROCODONE [Concomitant]
     Active Substance: ACETAMINOPHEN\HYDROCODONE
  6. CALCIUM CITRATE - VITAMIN [Concomitant]
  7. VITAMINS [Concomitant]
     Active Substance: VITAMINS
  8. ARANESP [Concomitant]
     Active Substance: DARBEPOETIN ALFA
  9. XGEVA [Concomitant]
     Active Substance: DENOSUMAB
  10. FIBER [Concomitant]

REACTIONS (1)
  - Death [Fatal]

NARRATIVE: CASE EVENT DATE: 20240118
